FAERS Safety Report 10484984 (Version 1)
Quarter: 2014Q3

REPORT INFORMATION
  Report Type: Report from Study
  Country: US (occurrence: US)
  Receive Date: 20140930
  Receipt Date: 20140930
  Transmission Date: 20150326
  Serious: Yes (Death)
  Sender: FDA-Public Use
  Company Number: PHEH2014US019474

PATIENT
  Sex: Female
  Weight: 141 kg

DRUGS (2)
  1. EXJADE [Suspect]
     Active Substance: DEFERASIROX
     Indication: OFF LABEL USE
  2. EXJADE [Suspect]
     Active Substance: DEFERASIROX
     Indication: BREAST NEOPLASM
     Dosage: 1000 MG, QD
     Route: 048
     Dates: start: 20140107

REACTIONS (2)
  - Drug hypersensitivity [Unknown]
  - Death [Fatal]
